FAERS Safety Report 5235356-3 (Version None)
Quarter: 2007Q1

REPORT INFORMATION
  Report Type: 
  Country: None (occurrence: None)
  Receive Date: 20070207
  Receipt Date: 20070207
  Transmission Date: 20070707
  Serious: Yes (Hospitalization)
  Sender: FDA-Public Use
  Company Number: None

PATIENT
  Age: 88 Year
  Sex: Male
  Weight: 60 kg

DRUGS (1)
  1. DOXAZOSIN MESYLATE 2MG TAB [Suspect]
     Indication: BENIGN PROSTATIC HYPERPLASIA
     Dosage: TAKE ONE TABLET BY MOUTH AT BEDTIME PO
     Route: 048
     Dates: start: 20061023, end: 20070126

REACTIONS (4)
  - BLOOD PRESSURE ORTHOSTATIC ABNORMAL [None]
  - HYPOTENSION [None]
  - POLLAKIURIA [None]
  - URINARY INCONTINENCE [None]
